FAERS Safety Report 7834098-5 (Version None)
Quarter: 2011Q4

REPORT INFORMATION
  Report Type: 
  Country: None (occurrence: None)
  Receive Date: 20111024
  Receipt Date: 20111024
  Transmission Date: 20120403
  Serious: Yes (Other)
  Sender: FDA-Public Use
  Company Number: None

PATIENT
  Age: 63 Year
  Sex: Male
  Weight: 77.11 kg

DRUGS (3)
  1. NASONEX [Concomitant]
  2. CIPROFLOXACIN [Suspect]
     Indication: URINARY TRACT INFECTION
     Dosage: 500
     Route: 048
     Dates: start: 20110530, end: 20110606
  3. SIMVASTATIN [Concomitant]

REACTIONS (2)
  - TENDON DISORDER [None]
  - ROTATOR CUFF SYNDROME [None]
